FAERS Safety Report 14447551 (Version 1)
Quarter: 2018Q1

REPORT INFORMATION
  Report Type: Spontaneous
  Country: US (occurrence: US)
  Receive Date: 20180126
  Receipt Date: 20180126
  Transmission Date: 20180509
  Serious: No
  Sender: FDA-Public Use
  Company Number: US-ABBVIE-17K-163-2106523-00

PATIENT
  Sex: Female

DRUGS (6)
  1. ORENCIA [Suspect]
     Active Substance: ABATACEPT
     Indication: PRODUCT USED FOR UNKNOWN INDICATION
     Route: 058
     Dates: end: 201502
  2. METHOTREXATE. [Suspect]
     Active Substance: METHOTREXATE
     Indication: PRODUCT USED FOR UNKNOWN INDICATION
     Route: 058
  3. HUMIRA [Suspect]
     Active Substance: ADALIMUMAB
     Indication: RHEUMATOID ARTHRITIS
     Route: 058
     Dates: start: 2010, end: 2011
  4. HUMIRA [Suspect]
     Active Substance: ADALIMUMAB
     Indication: RHEUMATOID FACTOR
     Route: 058
     Dates: start: 20170302, end: 20170531
  5. ARAVA [Suspect]
     Active Substance: LEFLUNOMIDE
     Indication: PRODUCT USED FOR UNKNOWN INDICATION
     Route: 065
     Dates: start: 2008, end: 2016
  6. PLAQUENIL [Suspect]
     Active Substance: HYDROXYCHLOROQUINE SULFATE
     Indication: PRODUCT USED FOR UNKNOWN INDICATION
     Route: 058

REACTIONS (20)
  - Intervertebral disc degeneration [Unknown]
  - Injection site reaction [Unknown]
  - Fatigue [Unknown]
  - Joint stiffness [Unknown]
  - Arthritis bacterial [Unknown]
  - Persistent depressive disorder [Unknown]
  - Vitamin D deficiency [Unknown]
  - Arthropathy [Unknown]
  - Hypersensitivity [Unknown]
  - Sinusitis [Unknown]
  - Condition aggravated [Unknown]
  - Hepatic steatosis [Unknown]
  - Rheumatoid arthritis [Unknown]
  - Drug ineffective [Unknown]
  - Eye prosthesis user [Unknown]
  - Hypertension [Unknown]
  - Skin mass [Unknown]
  - Pulmonary mass [Unknown]
  - Immunosuppressant drug therapy [Unknown]
  - Arthralgia [Unknown]
